FAERS Safety Report 12961087 (Version 1)
Quarter: 2016Q4

REPORT INFORMATION
  Report Type: Spontaneous
  Country: BR (occurrence: BR)
  Receive Date: 20161121
  Receipt Date: 20161121
  Transmission Date: 20170207
  Serious: Yes (Other)
  Sender: FDA-Public Use
  Company Number: BR-PFIZER INC-2016532387

PATIENT
  Age: 79 Year
  Sex: Female
  Weight: 70 kg

DRUGS (5)
  1. CITALOR [Suspect]
     Active Substance: ATORVASTATIN
     Dosage: UNK
     Route: 048
  2. ASPIRIN. [Concomitant]
     Active Substance: ASPIRIN
     Dosage: UNK
     Route: 048
  3. MERITOR [Concomitant]
     Active Substance: GLIMEPIRIDE\METFORMIN
     Dosage: UNK
  4. FORXIGA [Concomitant]
     Active Substance: DAPAGLIFLOZIN
     Indication: DIABETES MELLITUS
     Dosage: UNK
     Route: 048
  5. ERANZ [Suspect]
     Active Substance: DONEPEZIL HYDROCHLORIDE
     Dosage: UNK

REACTIONS (1)
  - Dementia Alzheimer^s type [Not Recovered/Not Resolved]
